FAERS Safety Report 18535617 (Version 1)
Quarter: 2020Q4

REPORT INFORMATION
  Report Type: Spontaneous
  Country: IT (occurrence: IT)
  Receive Date: 20201123
  Receipt Date: 20201123
  Transmission Date: 20210114
  Serious: Yes (Other)
  Sender: FDA-Public Use
  Company Number: IT-JAZZ-2020-IT-015111

PATIENT
  Age: 41 Year
  Sex: Female
  Weight: 130 kg

DRUGS (1)
  1. VYXEOS [Suspect]
     Active Substance: CYTARABINE\DAUNORUBICIN
     Indication: ACUTE MYELOID LEUKAEMIA
     Dosage: 144 MILLIGRAM/SQ. METER
     Route: 042
     Dates: start: 20200928, end: 20201002

REACTIONS (2)
  - Skin necrosis [Not Recovered/Not Resolved]
  - Phlebitis [Not Recovered/Not Resolved]

NARRATIVE: CASE EVENT DATE: 20201001
